FAERS Safety Report 7774750-3 (Version None)
Quarter: 2011Q3

REPORT INFORMATION
  Report Type: 
  Country: None (occurrence: None)
  Receive Date: 20110921
  Receipt Date: 20110719
  Transmission Date: 20111222
  Serious: Yes (Hospitalization)
  Sender: FDA-Public Use
  Company Number: UTC-008387

PATIENT
  Age: 68 Year
  Sex: Male
  Weight: 106.8 kg

DRUGS (6)
  1. TYVASO [Suspect]
     Indication: PULMONARY ARTERIAL HYPERTENSION
     Dosage: 72 MCG (18 MCG, 4 IN 1 D), INHALATION
     Route: 055
     Dates: start: 20110113, end: 20110624
  2. DIURETICS (DIURETICS) [Concomitant]
  3. ASPIRIN [Concomitant]
  4. OXYGEN (OXYGEN) [Concomitant]
  5. REVATIO [Concomitant]
  6. DIGOXIN [Concomitant]

REACTIONS (1)
  - SYNCOPE [None]
